FAERS Safety Report 21636337 (Version 1)
Quarter: 2022Q4

REPORT INFORMATION
  Report Type: Spontaneous
  Country: US (occurrence: US)
  Receive Date: 20221124
  Receipt Date: 20221124
  Transmission Date: 20230113
  Serious: Yes (Hospitalization)
  Sender: FDA-Public Use
  Company Number: US-BEH-2022152174

PATIENT
  Sex: Female

DRUGS (22)
  1. HIZENTRA [Suspect]
     Active Substance: HUMAN IMMUNOGLOBULIN G
     Indication: Immunodeficiency common variable
     Dosage: 10 GRAM, QW
     Route: 058
  2. CARVEDILOL [Concomitant]
     Active Substance: CARVEDILOL
  3. ALBUTEROL [Concomitant]
     Active Substance: ALBUTEROL
  4. ARIPIPRAZOLE [Concomitant]
     Active Substance: ARIPIPRAZOLE
  5. ASPIRIN [Concomitant]
     Active Substance: ASPIRIN
  6. ATORVASTATIN [Concomitant]
     Active Substance: ATORVASTATIN
  7. CLONAZEPAM [Concomitant]
     Active Substance: CLONAZEPAM
  8. CYANOCOBALAMIN [Concomitant]
     Active Substance: CYANOCOBALAMIN
  9. DULOXETINE HYDROCHLORIDE [Concomitant]
     Active Substance: DULOXETINE HYDROCHLORIDE
  10. FUROSEMIDE [Concomitant]
     Active Substance: FUROSEMIDE
  11. GABAPENTIN [Concomitant]
     Active Substance: GABAPENTIN
  12. INSULIN ASPART [Concomitant]
     Active Substance: INSULIN ASPART
  13. ISOSOR [Concomitant]
  14. LEVOTHYROXINE [Concomitant]
     Active Substance: LEVOTHYROXINE
  15. LISINOPRIL [Concomitant]
     Active Substance: LISINOPRIL
  16. OXCARBAZEPINE [Concomitant]
     Active Substance: OXCARBAZEPINE
  17. OXYBUTYNIN [Concomitant]
     Active Substance: OXYBUTYNIN
  18. PANTOPRAZOLE SODIUM [Concomitant]
     Active Substance: PANTOPRAZOLE SODIUM
  19. TIZANIDINE HYDROCHLORIDE [Concomitant]
     Active Substance: TIZANIDINE HYDROCHLORIDE
  20. TOPIRAMATE [Concomitant]
     Active Substance: TOPIRAMATE
  21. TRAMADOL HCL [Concomitant]
     Active Substance: TRAMADOL HYDROCHLORIDE
  22. TRAZODONE HCL [Concomitant]
     Active Substance: TRAZODONE HYDROCHLORIDE

REACTIONS (2)
  - Chest pain [Recovered/Resolved]
  - Dyspnoea [Recovered/Resolved]
